FAERS Safety Report 25578647 (Version 1)
Quarter: 2025Q3

REPORT INFORMATION
  Report Type: Spontaneous
  Country: GB (occurrence: GB)
  Receive Date: 20250718
  Receipt Date: 20250718
  Transmission Date: 20251021
  Serious: Yes (Hospitalization, Other)
  Sender: TEVA
  Company Number: None

PATIENT
  Age: 49 Year
  Sex: Female
  Weight: 110 kg

DRUGS (11)
  1. DEXAMETHASONE [Suspect]
     Active Substance: DEXAMETHASONE
     Indication: Asthma
     Route: 065
     Dates: end: 20250617
  2. DIAZEPAM [Concomitant]
     Active Substance: DIAZEPAM
     Indication: Adverse drug reaction
     Route: 065
  3. NAPROXEN [Concomitant]
     Active Substance: NAPROXEN
     Indication: Myopathy
     Route: 065
  4. GLYCOPYRROLATE\INDACATEROL\MOMETASONE FUROATE [Concomitant]
     Active Substance: GLYCOPYRROLATE\INDACATEROL\MOMETASONE FUROATE
     Indication: Asthma
     Route: 065
  5. ACETAMINOPHEN [Concomitant]
     Active Substance: ACETAMINOPHEN
     Indication: Myopathy
     Route: 065
  6. ESTRADIOL [Concomitant]
     Active Substance: ESTRADIOL
     Indication: Adverse drug reaction
     Route: 065
  7. LEVOTHYROXINE [Concomitant]
     Active Substance: LEVOTHYROXINE
     Indication: Autoimmune thyroiditis
     Route: 065
  8. DEXAMETHASONE [Suspect]
     Active Substance: DEXAMETHASONE
     Indication: Lower respiratory tract infection
     Route: 065
     Dates: end: 20250617
  9. Minera coil [Concomitant]
     Indication: Adverse drug reaction
     Route: 065
  10. SEA SALT [Concomitant]
     Active Substance: SEA SALT
     Indication: Adverse drug reaction
     Route: 065
  11. MONTELUKAST [Concomitant]
     Active Substance: MONTELUKAST
     Indication: Asthma
     Route: 065

REACTIONS (7)
  - Withdrawal syndrome [Unknown]
  - Hypomania [Recovering/Resolving]
  - Visual impairment [Unknown]
  - Asthenopia [Not Recovered/Not Resolved]
  - Pelvic pain [Unknown]
  - Attention deficit hyperactivity disorder [Unknown]
  - Anxiety [Unknown]

NARRATIVE: CASE EVENT DATE: 20250529
